FAERS Safety Report 11553472 (Version 1)
Quarter: 2015Q3

REPORT INFORMATION
  Report Type: Spontaneous
  Country: US (occurrence: None)
  Receive Date: 20150924
  Receipt Date: 20150924
  Transmission Date: 20151125
  Serious: Yes (Life-Threatening, Hospitalization)
  Sender: FDA-Public Use
  Company Number: None

PATIENT
  Age: 73 Year
  Sex: Female
  Weight: 56 kg

DRUGS (19)
  1. GARLIC. [Concomitant]
     Active Substance: GARLIC
  2. OMEGA-3-FATTY ACIDS [Concomitant]
  3. ASPIRIN. [Concomitant]
     Active Substance: ASPIRIN
  4. DOCUSATE [Concomitant]
     Active Substance: DOCUSATE
  5. MULTIVITAMINS [Concomitant]
     Active Substance: VITAMINS
  6. OXALIPLATIN. [Concomitant]
     Active Substance: OXALIPLATIN
  7. CALCIUM CARBONATE/CHOLECALCIFEROL [Concomitant]
     Active Substance: CALCIUM CARBONATE\CHOLECALCIFEROL
  8. LEVOTHYROXINE. [Concomitant]
     Active Substance: LEVOTHYROXINE
  9. LISINOPRIL AND HYDROCHLOROTHIAZIDE [Concomitant]
     Active Substance: HYDROCHLOROTHIAZIDE\LISINOPRIL
  10. ONDANSETRON [Concomitant]
     Active Substance: ONDANSETRON
  11. FLAXSEED [Concomitant]
     Active Substance: FLAX SEED
  12. GLUCOSAMINE/CHONDROITIN [Concomitant]
  13. OMEPRAZOLE. [Concomitant]
     Active Substance: OMEPRAZOLE
  14. COENZYME Q10 [Concomitant]
     Active Substance: UBIDECARENONE
  15. IBANDRONATE [Concomitant]
     Active Substance: IBANDRONATE SODIUM
  16. ROSUVASTATIN [Concomitant]
     Active Substance: ROSUVASTATIN
  17. ZOLPIDEM [Concomitant]
     Active Substance: ZOLPIDEM\ZOLPIDEM TARTRATE
  18. CAPECITABINE 500 MG [Suspect]
     Active Substance: CAPECITABINE
     Indication: COLORECTAL CANCER
     Dosage: 3 PILLS BID ORAL
     Route: 048
     Dates: start: 20150818, end: 20150826
  19. CETIRIZINE [Concomitant]
     Active Substance: CETIRIZINE HYDROCHLORIDE

REACTIONS (9)
  - Febrile neutropenia [None]
  - Rash [None]
  - Intestinal mass [None]
  - Nausea [None]
  - Thrombocytopenia [None]
  - Vomiting [None]
  - Mucosal inflammation [None]
  - Sepsis [None]
  - Diarrhoea [None]

NARRATIVE: CASE EVENT DATE: 20150827
